FAERS Safety Report 15300406 (Version 1)
Quarter: 2018Q4

REPORT INFORMATION
  Report Type: Spontaneous
  Country: PT (occurrence: PT)
  Receive Date: 20180821
  Receipt Date: 20180821
  Transmission Date: 20190204
  Serious: Yes (Other)
  Sender: FDA-Public Use
  Company Number: PT-HIKMA PHARMACEUTICALS USA INC.-PT-H14001-18-06957

PATIENT
  Age: 56 Year
  Sex: Female

DRUGS (8)
  1. ATORVASTATIN [Interacting]
     Active Substance: ATORVASTATIN
     Indication: PRODUCT USED FOR UNKNOWN INDICATION
     Route: 065
  2. LISINOPRIL. [Concomitant]
     Active Substance: LISINOPRIL
     Indication: PRODUCT USED FOR UNKNOWN INDICATION
     Route: 065
  3. AMIODARONE [Suspect]
     Active Substance: AMIODARONE
     Indication: PRODUCT USED FOR UNKNOWN INDICATION
     Route: 065
  4. BISOPROLOL [Concomitant]
     Active Substance: BISOPROLOL
     Indication: PRODUCT USED FOR UNKNOWN INDICATION
     Route: 065
  5. ESOMEPRAZOLE. [Concomitant]
     Active Substance: ESOMEPRAZOLE MAGNESIUM
     Indication: PRODUCT USED FOR UNKNOWN INDICATION
     Route: 065
  6. MEXAZOLAM [Concomitant]
     Active Substance: MEXAZOLAM
     Indication: PRODUCT USED FOR UNKNOWN INDICATION
     Route: 065
  7. ZEPATIER [Interacting]
     Active Substance: ELBASVIR\GRAZOPREVIR
     Indication: HEPATITIS C
     Route: 048
     Dates: start: 20180619
  8. VARFINE [Concomitant]
     Active Substance: WARFARIN SODIUM
     Indication: PRODUCT USED FOR UNKNOWN INDICATION
     Route: 065

REACTIONS (4)
  - Arthralgia [Not Recovered/Not Resolved]
  - Fatigue [Recovered/Resolved]
  - Drug interaction [Unknown]
  - Nausea [Recovered/Resolved]

NARRATIVE: CASE EVENT DATE: 20180619
